FAERS Safety Report 4782826-8 (Version None)
Quarter: 2005Q3

REPORT INFORMATION
  Report Type: 
  Country: None (occurrence: None)
  Receive Date: 20050929
  Receipt Date: 20050901
  Transmission Date: 20060218
  Serious: Yes (Hospitalization)
  Sender: FDA-Public Use
  Company Number: PHNU2005DE03034

PATIENT
  Age: 38 Year
  Sex: Male

DRUGS (3)
  1. CLOZARIL [Suspect]
     Dosage: 300 MG, ONCE/SINGLE
     Route: 048
     Dates: start: 20050901, end: 20050901
  2. SEROQUEL [Concomitant]
     Dosage: 200 MG, ONCE/SINGLE
     Route: 048
     Dates: start: 20050901, end: 20050901
  3. TAVOR [Suspect]
     Dosage: 2 MG, ONCE/SINGLE
     Route: 048
     Dates: start: 20050901, end: 20050901

REACTIONS (5)
  - ACCIDENTAL OVERDOSE [None]
  - DYSARTHRIA [None]
  - DYSPNOEA [None]
  - HYPOTENSION [None]
  - TACHYCARDIA [None]
